FAERS Safety Report 5199520-4 (Version None)
Quarter: 2006Q4

REPORT INFORMATION
  Report Type: 
  Country: None (occurrence: None)
  Receive Date: 20061229
  Receipt Date: 20061214
  Transmission Date: 20070319
  Serious: Yes (Hospitalization)
  Sender: FDA-Public Use
  Company Number: WAES 0612USA03282

PATIENT
  Age: 50 Year
  Sex: Female

DRUGS (6)
  1. GLIPIZIDE [Suspect]
     Indication: DIABETES MELLITUS NON-INSULIN-DEPENDENT
     Dosage: PO
     Route: 048
     Dates: start: 20060123
  2. TAB PLACEBO [Suspect]
     Indication: DIABETES MELLITUS NON-INSULIN-DEPENDENT
     Dosage: PO
     Route: 048
     Dates: start: 20060123
  3. DOLOGESIC [Concomitant]
  4. METFORMIN [Concomitant]
  5. METOPROLOL SUCCINATE [Concomitant]
  6. NIFEDIPINE [Concomitant]

REACTIONS (5)
  - BACK PAIN [None]
  - HYDRONEPHROSIS [None]
  - NEUTROPHIL COUNT INCREASED [None]
  - PLATELET COUNT INCREASED [None]
  - WHITE BLOOD CELL COUNT INCREASED [None]
